FAERS Safety Report 9600100 (Version 1)
Quarter: 2013Q4

REPORT INFORMATION
  Report Type: Spontaneous
  Country: US (occurrence: US)
  Receive Date: 20131004
  Receipt Date: 20131004
  Transmission Date: 20140711
  Serious: No
  Sender: FDA-Public Use
  Company Number: US-AMGEN-USASP2013032516

PATIENT
  Age: 48 Year
  Sex: Female
  Weight: 64.4 kg

DRUGS (1)
  1. ENBREL [Suspect]
     Indication: RHEUMATOID ARTHRITIS
     Dosage: 50 MG, ONCE EVERY WEEK
     Route: 058

REACTIONS (3)
  - Headache [Unknown]
  - Vomiting [Unknown]
  - Musculoskeletal pain [Unknown]
